FAERS Safety Report 4861455-1 (Version None)
Quarter: 2005Q4

REPORT INFORMATION
  Report Type: 
  Country: None (occurrence: None)
  Receive Date: 20051220
  Receipt Date: 20051209
  Transmission Date: 20060501
  Serious: Yes (Other)
  Sender: FDA-Public Use
  Company Number: CA-BRISTOL-MYERS SQUIBB COMPANY-13220801

PATIENT
  Age: 64 Year
  Sex: Female

DRUGS (6)
  1. TEQUIN [Suspect]
     Route: 048
  2. ALDACTAZIDE [Concomitant]
  3. DIAMICRON [Concomitant]
  4. IRBESARTAN [Concomitant]
  5. METFORMIN HCL [Concomitant]
  6. MONOPRIL [Concomitant]

REACTIONS (3)
  - COUGH [None]
  - HYPERGLYCAEMIA [None]
  - PYREXIA [None]
